FAERS Safety Report 19937053 (Version 1)
Quarter: 2021Q4

REPORT INFORMATION
  Report Type: Other
  Country: CA (occurrence: CA)
  Receive Date: 20211010
  Receipt Date: 20211010
  Transmission Date: 20220303
  Serious: Yes (Other)
  Sender: FDA-Public Use
  Company Number: CA-ROCHE-2248127

PATIENT
  Age: 76 Year
  Sex: Male
  Weight: 61.3 kg

DRUGS (15)
  1. ESBRIET [Suspect]
     Active Substance: PIRFENIDONE
     Indication: Idiopathic pulmonary fibrosis
     Route: 048
     Dates: start: 20190111, end: 20190117
  2. ESBRIET [Suspect]
     Active Substance: PIRFENIDONE
     Route: 048
     Dates: start: 20190125
  3. ESBRIET [Suspect]
     Active Substance: PIRFENIDONE
     Route: 048
     Dates: start: 20190118, end: 20190124
  4. ESBRIET [Suspect]
     Active Substance: PIRFENIDONE
     Route: 048
     Dates: start: 20190125, end: 20190126
  5. ESBRIET [Suspect]
     Active Substance: PIRFENIDONE
     Dosage: 1 801 MG TABLET TWICE DAILY
     Route: 048
     Dates: start: 20190128, end: 201902
  6. ESBRIET [Suspect]
     Active Substance: PIRFENIDONE
     Route: 048
     Dates: start: 201902, end: 20190404
  7. ESBRIET [Suspect]
     Active Substance: PIRFENIDONE
     Route: 048
     Dates: start: 201904, end: 202109
  8. BISOPROLOL [Concomitant]
     Active Substance: BISOPROLOL
  9. ELIQUIS [Concomitant]
     Active Substance: APIXABAN
  10. ROSUVASTATIN [Concomitant]
     Active Substance: ROSUVASTATIN
  11. VITAMIN C [Concomitant]
     Active Substance: ASCORBIC ACID
  12. ALIGN [Concomitant]
     Active Substance: BIFIDOBACTERIUM LONGUM SUBSP. INFANTIS
  13. IMODIUM [Concomitant]
     Active Substance: LOPERAMIDE HYDROCHLORIDE
     Dosage: HALF TAB EVERY SECOND DAY
  14. VENTOLIN [Concomitant]
     Active Substance: ALBUTEROL SULFATE
  15. CALCIUM [Concomitant]
     Active Substance: CALCIUM

REACTIONS (8)
  - Gastrooesophageal reflux disease [Recovered/Resolved]
  - Faeces soft [Unknown]
  - Diarrhoea [Unknown]
  - Flatulence [Unknown]
  - Dyspepsia [Unknown]
  - Diarrhoea [Unknown]
  - Sputum discoloured [Unknown]
  - Weight decreased [Unknown]

NARRATIVE: CASE EVENT DATE: 20190126
